FAERS Safety Report 12885655 (Version 7)
Quarter: 2018Q2

REPORT INFORMATION
  Report Type: Report from Study
  Country: IE (occurrence: IE)
  Receive Date: 20161026
  Receipt Date: 20180525
  Transmission Date: 20180711
  Serious: Yes (Hospitalization, Other)
  Sender: FDA-Public Use
  Company Number: IE-SA-2016SA125722

PATIENT
  Age: 52 Year
  Sex: Male

DRUGS (20)
  1. AGALSIDASE BETA [Suspect]
     Active Substance: AGALSIDASE BETA
     Indication: FABRY^S DISEASE
     Dosage: 90 MG,QOW
     Route: 041
     Dates: start: 20120228, end: 2016
  2. AGALSIDASE BETA [Suspect]
     Active Substance: AGALSIDASE BETA
     Dosage: 90 MG,QOW
     Route: 041
     Dates: start: 20160719
  3. NEO-CYTAMEN [Concomitant]
     Dosage: 1000 UNK, QM
  4. VITAMIN D [Concomitant]
     Active Substance: CHOLECALCIFEROL
     Dosage: 1000 U, QD
  5. AGALSIDASE BETA [Suspect]
     Active Substance: AGALSIDASE BETA
     Dosage: 90 MG,QOW
     Route: 041
     Dates: start: 20120228, end: 2016
  6. AGALSIDASE BETA [Suspect]
     Active Substance: AGALSIDASE BETA
     Dosage: 90 MG,QOW
     Route: 041
     Dates: start: 20160719
  7. AGALSIDASE BETA [Suspect]
     Active Substance: AGALSIDASE BETA
     Dosage: 90 MG,QOW
     Route: 041
     Dates: start: 20160719
  8. AGALSIDASE BETA [Suspect]
     Active Substance: AGALSIDASE BETA
     Dosage: 90 MG,QOW
     Route: 041
     Dates: start: 20120228, end: 2016
  9. AGALSIDASE BETA [Suspect]
     Active Substance: AGALSIDASE BETA
     Dosage: 90 MG,QOW
     Route: 041
     Dates: start: 20160719
  10. CARDICOR [Concomitant]
     Active Substance: BISOPROLOL
     Dosage: 2.5 MG,QD
     Route: 048
  11. AGALSIDASE BETA [Suspect]
     Active Substance: AGALSIDASE BETA
     Dosage: 90 MG,QOW
     Route: 041
     Dates: start: 20120228, end: 2016
  12. AGALSIDASE BETA [Suspect]
     Active Substance: AGALSIDASE BETA
     Dosage: 90 MG,QOW
     Route: 041
     Dates: start: 20120228, end: 2016
  13. AGALSIDASE BETA [Suspect]
     Active Substance: AGALSIDASE BETA
     Dosage: 90 MG,QOW
     Route: 041
     Dates: start: 20160719
  14. AGALSIDASE BETA [Suspect]
     Active Substance: AGALSIDASE BETA
     Dosage: 90 MG,QOW
     Route: 041
     Dates: start: 20160719
  15. RANITIDINE. [Concomitant]
     Active Substance: RANITIDINE
     Dosage: 150 MG,QD
  16. PIRITON [Concomitant]
     Active Substance: CHLORPHENIRAMINE MALEATE
     Dosage: UNK UNK, PRN
  17. AGALSIDASE BETA [Suspect]
     Active Substance: AGALSIDASE BETA
     Dosage: 90 MG,QOW
     Route: 041
     Dates: start: 20120228, end: 2016
  18. XARELTO [Concomitant]
     Active Substance: RIVAROXABAN
     Dosage: 15 MG,QD
     Route: 048
  19. TRITACE [Concomitant]
     Active Substance: RAMIPRIL
     Dosage: 5 MG,QD
     Route: 048
  20. ACETYLSALICYLIC ACID [Concomitant]
     Active Substance: ASPIRIN
     Dosage: 75 MG,QD

REACTIONS (11)
  - Vomiting [Recovered/Resolved]
  - Nausea [Not Recovered/Not Resolved]
  - Dizziness [Not Recovered/Not Resolved]
  - Ear pain [Not Recovered/Not Resolved]
  - Hypoaesthesia [Recovered/Resolved]
  - Transient ischaemic attack [Unknown]
  - Anxiety [Not Recovered/Not Resolved]
  - Headache [Recovered/Resolved]
  - Head discomfort [Not Recovered/Not Resolved]
  - Paraesthesia [Not Recovered/Not Resolved]
  - Myalgia [Not Recovered/Not Resolved]

NARRATIVE: CASE EVENT DATE: 2016
